FAERS Safety Report 11836585 (Version 2)
Quarter: 2015Q4

REPORT INFORMATION
  Report Type: Spontaneous
  Country: DE (occurrence: DE)
  Receive Date: 20151215
  Receipt Date: 20151228
  Transmission Date: 20160305
  Serious: Yes (Hospitalization)
  Sender: FDA-Public Use
  Company Number: DE-SHIRE-DE201513174

PATIENT
  Age: 7 Year
  Sex: Male
  Weight: 25.6 kg

DRUGS (2)
  1. ELVANSE [Suspect]
     Active Substance: LISDEXAMFETAMINE DIMESYLATE
     Indication: ATTENTION DEFICIT/HYPERACTIVITY DISORDER
     Dosage: 15 MG DISSOLVED IN WATER, 1X/DAY:QD (IN THE MORNING)
     Route: 048
     Dates: start: 20140821, end: 20140827
  2. ELVANSE [Suspect]
     Active Substance: LISDEXAMFETAMINE DIMESYLATE
     Dosage: 30 MG, 1X/DAY:QD
     Route: 048
     Dates: start: 20140828, end: 20140910

REACTIONS (6)
  - Apathy [Recovered/Resolved]
  - Anxiety [Recovered/Resolved]
  - Affect lability [Recovered/Resolved]
  - Underdose [Recovered/Resolved]
  - Dysphoria [Unknown]
  - Wrong technique in product usage process [Recovered/Resolved]

NARRATIVE: CASE EVENT DATE: 2014
